FAERS Safety Report 10288905 (Version 4)
Quarter: 2014Q3

REPORT INFORMATION
  Report Type: Spontaneous
  Country: JP (occurrence: JP)
  Receive Date: 20140709
  Receipt Date: 20140916
  Transmission Date: 20150326
  Serious: Yes (Death, Hospitalization)
  Sender: FDA-Public Use
  Company Number: PHHY2014JP083694

PATIENT
  Age: 81 Year
  Sex: Female

DRUGS (3)
  1. SENNA [Concomitant]
     Active Substance: SENNA LEAF\SENNOSIDES\SENNOSIDES A AND B
     Indication: CONSTIPATION
     Dosage: 0.5 MG, DAILY
     Route: 048
     Dates: start: 20030327, end: 20030609
  2. VOLTAREN [Suspect]
     Active Substance: DICLOFENAC SODIUM
     Indication: CANCER PAIN
     Dosage: 50 MG DAILY
     Route: 054
     Dates: start: 20030421, end: 20030609
  3. MALOCIN                            /07172001/ [Concomitant]
     Indication: INSOMNIA
     Dosage: 1 MG, UNK
     Route: 048
     Dates: start: 20021114, end: 20030609

REACTIONS (3)
  - Abdominal pain upper [Recovering/Resolving]
  - Respiratory failure [Fatal]
  - Gastric ulcer [Recovering/Resolving]

NARRATIVE: CASE EVENT DATE: 20030606
